FAERS Safety Report 22001485 (Version 9)
Quarter: 2024Q1

REPORT INFORMATION
  Report Type: Spontaneous
  Country: US (occurrence: US)
  Receive Date: 20230216
  Receipt Date: 20240320
  Transmission Date: 20240409
  Serious: Yes (Hospitalization)
  Sender: FDA-Public Use
  Company Number: US-KARYOPHARM-2022KPT001672

PATIENT

DRUGS (14)
  1. XPOVIO [Suspect]
     Active Substance: SELINEXOR
     Indication: Plasma cell myeloma
     Dosage: 80 MG, WEEKLY ON DAYS 1, 8, AND 15 OF EACH 28-DAY CYCLE
     Route: 048
     Dates: start: 2022, end: 202212
  2. XPOVIO [Suspect]
     Active Substance: SELINEXOR
     Dosage: 80 MG, WEEKLY FOR 3 WEEKS
     Route: 048
     Dates: end: 20230512
  3. XPOVIO [Suspect]
     Active Substance: SELINEXOR
     Dosage: 80 MG, WEEKLY
     Route: 048
     Dates: start: 2023, end: 202308
  4. XPOVIO [Suspect]
     Active Substance: SELINEXOR
     Dosage: 60 MG, WEEKLY, DAY 1, 8, 15
     Route: 048
     Dates: start: 2023
  5. KYPROLIS [Concomitant]
     Active Substance: CARFILZOMIB
  6. GRANISETRON [Concomitant]
     Active Substance: GRANISETRON
  7. LORAZEPAM [Concomitant]
     Active Substance: LORAZEPAM
  8. MIDODRINE [Concomitant]
     Active Substance: MIDODRINE
  9. PANTOPRAZOLE [Concomitant]
     Active Substance: PANTOPRAZOLE
  10. PHENYTOIN [Concomitant]
     Active Substance: PHENYTOIN
  11. DEXAMETHASONE [Concomitant]
     Active Substance: DEXAMETHASONE
  12. OLANZAPINE [Concomitant]
     Active Substance: OLANZAPINE
  13. ASPIRIN [Concomitant]
     Active Substance: ASPIRIN
  14. ACETAMINOPHEN [Concomitant]
     Active Substance: ACETAMINOPHEN

REACTIONS (10)
  - Cerebrovascular accident [Unknown]
  - Abdominal discomfort [Unknown]
  - Influenza like illness [Unknown]
  - Pain [Unknown]
  - Neutropenia [Unknown]
  - Decreased appetite [Unknown]
  - White blood cell count decreased [Not Recovered/Not Resolved]
  - Nausea [Not Recovered/Not Resolved]
  - Fatigue [Not Recovered/Not Resolved]
  - Platelet count decreased [Unknown]

NARRATIVE: CASE EVENT DATE: 20221201
